FAERS Safety Report 20979817 (Version 1)
Quarter: 2022Q2

REPORT INFORMATION
  Report Type: Spontaneous
  Country: FR (occurrence: FR)
  Receive Date: 20220620
  Receipt Date: 20220620
  Transmission Date: 20220721
  Serious: Yes (Other)
  Sender: FDA-Public Use
  Company Number: FR-AFSSAPS-PV20220718

PATIENT
  Age: 23 Year
  Sex: Female
  Weight: 78 kg

DRUGS (6)
  1. AMOXICILLIN [Suspect]
     Active Substance: AMOXICILLIN
     Indication: Poisoning deliberate
     Dosage: 12 GRAM, TOTAL (24 TABS OF 500MG)
     Route: 048
     Dates: start: 20201009, end: 20201009
  2. NAPROXEN [Suspect]
     Active Substance: NAPROXEN
     Indication: Poisoning deliberate
     Dosage: 4400 MILLIGRAM, TOTAL (8 TABS OF 550MG)
     Route: 048
     Dates: start: 20201009, end: 20201009
  3. ARTEMETHER [Suspect]
     Active Substance: ARTEMETHER
     Indication: Poisoning deliberate
     Dosage: 480 MILLIGRAM, TOTAL (6 TABS OF 80MG)
     Route: 048
     Dates: start: 20201009, end: 20201009
  4. DAFALGAN CODEINE [Suspect]
     Active Substance: ACETAMINOPHEN\CODEINE PHOSPHATE
     Indication: Poisoning deliberate
     Dosage: 4 GRAM, TOTAL (8 TABS OF 500MG)
     Route: 048
     Dates: start: 20201009, end: 20201009
  5. DOLIPRANE [Suspect]
     Active Substance: ACETAMINOPHEN
     Indication: Poisoning deliberate
     Dosage: 8 GRAM, TOTAL
     Route: 048
     Dates: start: 20201009, end: 20201009
  6. LUMEFANTRINE [Suspect]
     Active Substance: LUMEFANTRINE
     Indication: Poisoning deliberate
     Dosage: 2880 MILLIGRAM, TOTAL (6 TABS OF 480MG)
     Route: 048
     Dates: start: 20201009, end: 20201009

REACTIONS (3)
  - Poisoning deliberate [Recovered/Resolved]
  - Vomiting [Recovered/Resolved]
  - Abdominal pain upper [Recovered/Resolved]

NARRATIVE: CASE EVENT DATE: 20201009
